FAERS Safety Report 6700858-7 (Version None)
Quarter: 2010Q2

REPORT INFORMATION
  Report Type: 
  Country: None (occurrence: None)
  Receive Date: 20100428
  Receipt Date: 20100415
  Transmission Date: 20101027
  Serious: Yes (Hospitalization)
  Sender: FDA-Public Use
  Company Number: IT-ELI_LILLY_AND_COMPANY-IT201004003856

PATIENT
  Sex: Female

DRUGS (5)
  1. GEMZAR [Suspect]
     Indication: HETEROPLASIA
     Dosage: 1400 MG, UNKNOWN
     Route: 065
     Dates: start: 20091201
  2. GEMZAR [Suspect]
     Dosage: 1000 MG, UNKNOWN
     Route: 065
     Dates: start: 20091201
  3. GEMZAR [Suspect]
     Dosage: 200 MG, UNKNOWN
     Route: 065
     Dates: start: 20091201
  4. DELTACORTENE [Concomitant]
     Dosage: 25 MG, OTHER
     Route: 065
  5. ZYRTEC [Concomitant]
     Dosage: UNK, OTHER
     Route: 065

REACTIONS (5)
  - ALANINE AMINOTRANSFERASE ABNORMAL [None]
  - ASPARTATE AMINOTRANSFERASE ABNORMAL [None]
  - BLOOD BILIRUBIN ABNORMAL [None]
  - BONE MARROW TOXICITY [None]
  - JAUNDICE [None]
